FAERS Safety Report 19194242 (Version 1)
Quarter: 2021Q2

REPORT INFORMATION
  Report Type: Other
  Country: CZ (occurrence: CZ)
  Receive Date: 20210429
  Receipt Date: 20210429
  Transmission Date: 20210717
  Serious: Yes (Hospitalization, Other)
  Sender: FDA-Public Use
  Company Number: CZ-STRIDES ARCOLAB LIMITED-2021SP004898

PATIENT
  Age: 71 Year
  Sex: Female

DRUGS (2)
  1. PARACETAMOL [Concomitant]
     Active Substance: ACETAMINOPHEN
     Indication: PYREXIA
     Dosage: 500 MILLIGRAM
     Route: 048
     Dates: start: 20210401
  2. IBUPROFEN. [Suspect]
     Active Substance: IBUPROFEN
     Indication: COVID-19
     Dosage: POWDER FOR SOLUTION FOR INFUSION, 700 MILLIGRAM
     Route: 042
     Dates: start: 20210401

REACTIONS (7)
  - Chills [Recovered/Resolved]
  - Euphoric mood [Recovered/Resolved]
  - Confusional state [Recovered/Resolved]
  - Flatulence [Recovered/Resolved]
  - Pyrexia [Recovered/Resolved]
  - Erythema [Recovered/Resolved]
  - Off label use [Unknown]

NARRATIVE: CASE EVENT DATE: 20210401
